FAERS Safety Report 15991905 (Version 3)
Quarter: 2019Q2

REPORT INFORMATION
  Report Type: Spontaneous
  Country: US (occurrence: US)
  Receive Date: 20190221
  Receipt Date: 20190628
  Transmission Date: 20190711
  Serious: No
  Sender: FDA-Public Use
  Company Number: US-PFIZER INC-2018294160

PATIENT
  Age: 69 Year
  Sex: Female
  Weight: 62 kg

DRUGS (6)
  1. IBRANCE [Suspect]
     Active Substance: PALBOCICLIB
     Indication: BREAST CANCER METASTATIC
     Dosage: 125 MG, CYCLIC
     Dates: start: 20181118
  2. SYNTHROID [Concomitant]
     Active Substance: LEVOTHYROXINE SODIUM
     Dosage: UNK
  3. XGEVA [Concomitant]
     Active Substance: DENOSUMAB
     Dosage: UNK, ONCE A MONTH
     Route: 048
  4. FULVESTRANT. [Concomitant]
     Active Substance: FULVESTRANT
     Dosage: UNK
  5. LOSARTAN. [Concomitant]
     Active Substance: LOSARTAN
     Dosage: UNK
  6. METFORMIN [Concomitant]
     Active Substance: METFORMIN HYDROCHLORIDE
     Dosage: UNK

REACTIONS (2)
  - Diarrhoea [Not Recovered/Not Resolved]
  - Nausea [Recovered/Resolved]
